FAERS Safety Report 4734805-4 (Version None)
Quarter: 2005Q3

REPORT INFORMATION
  Report Type: 
  Country: None (occurrence: None)
  Receive Date: 20050804
  Receipt Date: 20050728
  Transmission Date: 20060218
  Serious: Yes (Congenital Anomaly)
  Sender: FDA-Public Use
  Company Number: AU-JNJFOC-20050801096

PATIENT
  Sex: Female
  Weight: 2.84 kg

DRUGS (6)
  1. RISPERDAL CONSTA [Suspect]
  2. ERYTHROMYCIN [Concomitant]
  3. ACETAMINOPHEN W/ CODEINE [Concomitant]
  4. ACETAMINOPHEN W/ CODEINE [Concomitant]
  5. ACETAMINOPHEN [Concomitant]
  6. EPILIM [Concomitant]

REACTIONS (1)
  - DEAFNESS [None]
